FAERS Safety Report 4562443-5 (Version None)
Quarter: 2005Q1

REPORT INFORMATION
  Report Type: 
  Country: None (occurrence: None)
  Receive Date: 20050121
  Receipt Date: 20050111
  Transmission Date: 20050727
  Serious: Yes (Death, Hospitalization)
  Sender: FDA-Public Use
  Company Number: HQWYE528011JAN05

PATIENT
  Age: 93 Year
  Sex: Female

DRUGS (5)
  1. CORDARONE [Suspect]
     Indication: ATRIAL FIBRILLATION
     Dosage: 200 MG 5X PER 1 WK
     Route: 048
     Dates: start: 19990615, end: 20040303
  2. CORDARONE [Suspect]
     Indication: ATRIAL FLUTTER
     Dosage: 200 MG 5X PER 1 WK
     Route: 048
     Dates: start: 19990615, end: 20040303
  3. DIGOXIN [Suspect]
     Indication: ATRIAL FIBRILLATION
     Dosage: 0.125 MG 3X PER 1 WK
     Route: 048
     Dates: start: 20040201, end: 20040301
  4. DIGOXIN [Suspect]
     Indication: ATRIAL FLUTTER
     Dosage: 0.125 MG 3X PER 1 WK
     Route: 048
     Dates: start: 20040201, end: 20040301
  5. LASILIX (FUROSEMIDE) [Concomitant]

REACTIONS (7)
  - ATRIOVENTRICULAR BLOCK FIRST DEGREE [None]
  - ATRIOVENTRICULAR BLOCK SECOND DEGREE [None]
  - BRADYCARDIA [None]
  - ESCHAR [None]
  - GENERAL PHYSICAL HEALTH DETERIORATION [None]
  - HYPOTHYROIDISM [None]
  - LUNG DISORDER [None]
